FAERS Safety Report 6125101-1 (Version None)
Quarter: 2009Q1

REPORT INFORMATION
  Report Type: 
  Country: None (occurrence: None)
  Receive Date: 20090319
  Receipt Date: 20090304
  Transmission Date: 20090719
  Serious: Yes (Hospitalization)
  Sender: FDA-Public Use
  Company Number: ES-PFIZER INC-2009178300

PATIENT

DRUGS (4)
  1. PEGVISOMANT [Suspect]
     Indication: ACROMEGALY
     Dosage: 10 MG, 1X/DAY
     Route: 058
     Dates: start: 20040201
  2. ATORVASTATIN CALCIUM [Concomitant]
  3. PARACETAMOL [Concomitant]
  4. ESTROGENIC SUBSTANCE [Concomitant]
     Route: 062

REACTIONS (1)
  - HEPATITIS CHOLESTATIC [None]
